FAERS Safety Report 10018338 (Version 4)
Quarter: 2014Q2

REPORT INFORMATION
  Report Type: Spontaneous
  Country: JP (occurrence: JP)
  Receive Date: 20140318
  Receipt Date: 20140519
  Transmission Date: 20141212
  Serious: Yes (Death, Other)
  Sender: FDA-Public Use
  Company Number: JP-ABBVIE-14P-087-1212653-00

PATIENT
  Age: 79 Year
  Sex: Male
  Weight: 57 kg

DRUGS (3)
  1. HUMIRA [Suspect]
     Indication: PSORIASIS
     Route: 058
     Dates: start: 20101018, end: 20101018
  2. HUMIRA [Suspect]
     Indication: PSORIASIS
     Route: 058
     Dates: start: 20101101, end: 20140218
  3. STEROID [Concomitant]
     Indication: PSORIASIS
     Route: 061
     Dates: start: 20080313, end: 20101018

REACTIONS (3)
  - Death [Fatal]
  - Gastric cancer [Unknown]
  - Gastric polyps [Unknown]
